FAERS Safety Report 20697321 (Version 2)
Quarter: 2022Q2

REPORT INFORMATION
  Report Type: Spontaneous
  Country: US (occurrence: US)
  Receive Date: 20220411
  Receipt Date: 20220518
  Transmission Date: 20220721
  Serious: No
  Sender: FDA-Public Use
  Company Number: US-BRISTOL-MYERS SQUIBB COMPANY-2022-015210

PATIENT
  Age: 79 Year
  Sex: Female
  Weight: 60.327 kg

DRUGS (1)
  1. POMALYST [Suspect]
     Active Substance: POMALIDOMIDE
     Indication: Plasma cell myeloma
     Dosage: FREQUENCY:3W , 1 W OFF
     Route: 048

REACTIONS (2)
  - Platelet count decreased [Unknown]
  - Neutrophil count decreased [Unknown]
